FAERS Safety Report 21984436 (Version 1)
Quarter: 2023Q1

REPORT INFORMATION
  Report Type: Spontaneous
  Country: US (occurrence: None)
  Receive Date: 20230209
  Receipt Date: 20230209
  Transmission Date: 20230418
  Serious: Yes (Other)
  Sender: FDA-Public Use
  Company Number: None

PATIENT
  Age: 77 Year
  Sex: Female

DRUGS (4)
  1. CIMZIA [Suspect]
     Active Substance: CERTOLIZUMAB PEGOL
     Indication: Crohn^s disease
     Dosage: 2X200 MG/ML SUBCUTANEOUS? INJECT 2 MLS (400 MG TOTAL) INTO THE SKIN EVERY 28 (TWENTY-EIGHT) DAYS
     Route: 058
     Dates: start: 20210122
  2. CIMZIA [Suspect]
     Active Substance: CERTOLIZUMAB PEGOL
     Indication: Intestinal obstruction
  3. BENTANYL INJ [Concomitant]
  4. PERCOCET TAB [Concomitant]

REACTIONS (2)
  - Intestinal obstruction [None]
  - Intentional dose omission [None]

NARRATIVE: CASE EVENT DATE: 20230118
